FAERS Safety Report 7230227-5 (Version None)
Quarter: 2011Q1

REPORT INFORMATION
  Report Type: 
  Country: None (occurrence: None)
  Receive Date: 20110118
  Receipt Date: 20110113
  Transmission Date: 20110831
  Serious: Yes (Death, Hospitalization, Other)
  Sender: FDA-Public Use
  Company Number: US-ASTELLAS-2011US000043

PATIENT

DRUGS (22)
  1. XANAX [Concomitant]
     Indication: ANXIETY
     Dosage: 0.25 MG, BID
     Route: 048
     Dates: end: 20101220
  2. CETIRIZINE HCL [Concomitant]
     Indication: HYPERSENSITIVITY
     Dosage: 10 MG, UID/QD
     Route: 048
     Dates: end: 20101220
  3. PERCOCET [Concomitant]
     Indication: BACK PAIN
     Dosage: 1-2 DF, UNKNOWN/D
     Route: 048
     Dates: end: 20101220
  4. PREDNISONE [Concomitant]
     Indication: IMMUNOSUPPRESSANT DRUG THERAPY
     Dosage: 5 MG, UID/QD
     Route: 048
     Dates: end: 20101220
  5. NOVOLOG [Concomitant]
     Indication: DIABETES MELLITUS
     Dosage: 4 U, UNKNOWN/D
     Route: 058
  6. PROGRAF [Suspect]
     Indication: HEART TRANSPLANT
     Dosage: 1 MG, BID
     Route: 048
     Dates: start: 20000724, end: 20101220
  7. LANTUS [Concomitant]
     Indication: DIABETES MELLITUS
     Dosage: 30 U, QHS/INJECTION
     Route: 058
     Dates: end: 20101220
  8. COLACE [Concomitant]
     Indication: CONSTIPATION
     Dosage: 100 MG, PRN
     Route: 048
     Dates: end: 20101220
  9. MAGNESIUM OXIDE [Concomitant]
     Indication: SUPPLEMENTATION THERAPY
     Dosage: 400 MG, BID
     Route: 048
     Dates: end: 20101220
  10. PLAVIX [Concomitant]
     Indication: ANTICOAGULANT THERAPY
     Dosage: 75 MG, UID/QD
     Route: 048
     Dates: end: 20101220
  11. NEURONTIN [Concomitant]
     Indication: PAIN
     Dosage: 100 MG, QHS
     Route: 048
     Dates: end: 20101220
  12. CYCLOBENZAPRINE [Concomitant]
     Indication: MUSCLE SPASMS
     Dosage: 100 MG, BID
     Route: 048
     Dates: end: 20101220
  13. MYFORTIC [Concomitant]
     Indication: HEART TRANSPLANT
     Dosage: 360 MG, BID
     Route: 048
     Dates: end: 20101220
  14. ELAVIL [Concomitant]
     Indication: INSOMNIA
  15. COLCHICINE [Concomitant]
     Indication: GOUT
     Dosage: 0.6 MG, 2XWEEKLY
     Route: 048
     Dates: end: 20101220
  16. ASPIRIN [Concomitant]
     Indication: CARDIAC DISORDER
     Dosage: 325 MG, UID/QD
     Route: 048
     Dates: end: 20101220
  17. ELAVIL [Concomitant]
     Indication: DEPRESSION
     Dosage: 25 MG, QHS
     Route: 048
     Dates: end: 20101220
  18. NEPHROCAPS [Concomitant]
     Indication: RENAL DISORDER
     Dosage: 1 DF, UID/QD
     Route: 048
     Dates: end: 20101220
  19. COUMADIN [Concomitant]
     Indication: ANTICOAGULANT THERAPY
     Dosage: 5 MG, QHS
     Route: 048
     Dates: end: 20101220
  20. PROTONIX [Concomitant]
     Indication: GASTROOESOPHAGEAL REFLUX DISEASE
     Dosage: 40 MG, UID/QD
     Route: 048
     Dates: end: 20101220
  21. COREG [Concomitant]
     Indication: CARDIAC DISORDER
     Dosage: 3.125 MG, BID
     Route: 048
     Dates: end: 20101220
  22. EPOGEN [Concomitant]
     Indication: BLOOD COUNT ABNORMAL

REACTIONS (9)
  - TREATMENT NONCOMPLIANCE [None]
  - RENAL FAILURE ACUTE [None]
  - HEART TRANSPLANT REJECTION [None]
  - SYNCOPE [None]
  - SMALL INTESTINAL PERFORATION [None]
  - RENAL FAILURE CHRONIC [None]
  - RENAL FAILURE [None]
  - CARDIAC FAILURE CONGESTIVE [None]
  - URINARY TRACT INFECTION ENTEROCOCCAL [None]
